FAERS Safety Report 6426024-0 (Version None)
Quarter: 2009Q4

REPORT INFORMATION
  Report Type: 
  Country: None (occurrence: None)
  Receive Date: 20091104
  Receipt Date: 20091102
  Transmission Date: 20100525
  Serious: Yes (Death, Hospitalization, Other)
  Sender: FDA-Public Use
  Company Number: US-ASTRAZENECA-2007UW14334

PATIENT
  Age: 54 Year
  Sex: Female
  Weight: 65.8 kg

DRUGS (39)
  1. SEROQUEL [Suspect]
     Indication: SLEEP DISORDER
     Dosage: 25 - 100 MG
     Route: 048
     Dates: start: 20030514
  2. SEROQUEL [Suspect]
     Indication: TACHYPHRENIA
     Dosage: 25 - 100 MG
     Route: 048
     Dates: start: 20030514
  3. SEROQUEL [Suspect]
     Route: 048
     Dates: start: 20040505
  4. SEROQUEL [Suspect]
     Route: 048
     Dates: start: 20040505
  5. SEROQUEL [Suspect]
     Route: 048
     Dates: start: 20041203, end: 20050926
  6. SEROQUEL [Suspect]
     Route: 048
     Dates: start: 20041203, end: 20050926
  7. LORCET-HD [Concomitant]
     Indication: PAIN
     Dosage: 5 MG-7.5 MG
  8. LODINE [Concomitant]
  9. TYLOX [Concomitant]
  10. FLOVENT [Concomitant]
  11. VISTARIL [Concomitant]
  12. VALIUM [Concomitant]
     Indication: ANXIETY
     Dosage: 5 MG-80 MG
  13. VALIUM [Concomitant]
     Indication: PANIC ATTACK
     Dosage: 5 MG-80 MG
  14. LASIX [Concomitant]
  15. COMBIVENT [Concomitant]
  16. PROZAC [Concomitant]
     Indication: DEPRESSION
     Dosage: 20 MG-60 MG
  17. PROZAC [Concomitant]
     Indication: ANXIETY
     Dosage: 20 MG-60 MG
  18. PROZAC [Concomitant]
     Indication: PANIC ATTACK
     Dosage: 20 MG-60 MG
  19. DOCUSATE [Concomitant]
  20. LIPITOR [Concomitant]
     Dosage: 10 MG-40 MG
     Route: 048
  21. ZESTRIL [Concomitant]
  22. TRAZODONE [Concomitant]
     Dosage: 100 MG-150 MG
  23. WELLBUTRIN [Concomitant]
     Dosage: 100 MG-300 MG
  24. PLAVIX [Concomitant]
  25. PRILOSEC [Concomitant]
  26. NAPROXEN [Concomitant]
  27. KLONOPIN [Concomitant]
     Dosage: 0.5 MG-1 MG
  28. FAMOTIDINE [Concomitant]
  29. MUCINEX [Concomitant]
  30. ASPIRIN [Concomitant]
     Dosage: 81 MG-325 MG
     Route: 048
  31. XOPENEX [Concomitant]
  32. PROMETHAZINE [Concomitant]
  33. ZANTAC [Concomitant]
  34. ZOLPIDEM [Concomitant]
  35. POTASSIUM CHLORIDE SUPPLEMENT [Concomitant]
     Dosage: 8 MEQ TO 20 MEQ
  36. COREG [Concomitant]
     Dosage: 3.125 MG HALF TABLET TWO TIMES A DAY
  37. ATENOLOL [Concomitant]
     Indication: PALPITATIONS
  38. LOPRESSOR [Concomitant]
     Dosage: 12.5 MG DAILY, TWO TIMES  DAY, 25 MG HALF TABLET DAILY
  39. FLEXERIL [Concomitant]

REACTIONS (19)
  - ANAEMIA [None]
  - BREAST DISCHARGE [None]
  - BRONCHITIS [None]
  - BURSITIS [None]
  - COLITIS [None]
  - DEATH [None]
  - DIVERTICULUM [None]
  - GASTROINTESTINAL HAEMORRHAGE [None]
  - HOT FLUSH [None]
  - HYPERGLYCAEMIA [None]
  - HYPOKALAEMIA [None]
  - HYPOTENSION [None]
  - JOINT EFFUSION [None]
  - LUNG CONSOLIDATION [None]
  - MYOCARDIAL INFARCTION [None]
  - PARAESTHESIA [None]
  - PERIPHERAL VASCULAR DISORDER [None]
  - RHINITIS [None]
  - TYPE 2 DIABETES MELLITUS [None]
